FAERS Safety Report 8969676 (Version 1)
Quarter: 2012Q4

REPORT INFORMATION
  Report Type: 
  Country: US (occurrence: US)
  Receive Date: 20121218
  Receipt Date: 20121218
  Transmission Date: 20130627
  Serious: Yes (Other)
  Sender: FDA-Public Use
  Company Number: US-BRISTOL-MYERS SQUIBB COMPANY-16556193

PATIENT
  Age: 24 Year
  Sex: Male

DRUGS (2)
  1. ABILIFY [Suspect]
     Indication: BIPOLAR DISORDER
     Dosage: Dose stareted as 2mg for 10D
then increased to 5mg on 19Apr2012
     Route: 048
     Dates: start: 20120412
  2. SEROQUEL [Suspect]

REACTIONS (1)
  - Urinary retention [Recovered/Resolved]
